FAERS Safety Report 10960749 (Version 2)
Quarter: 2015Q2

REPORT INFORMATION
  Report Type: Spontaneous
  Country: US (occurrence: US)
  Receive Date: 20150327
  Receipt Date: 20150416
  Transmission Date: 20150821
  Serious: Yes (Other)
  Sender: FDA-Public Use
  Company Number: US-PFIZER INC-2015107028

PATIENT
  Age: 72 Year
  Sex: Female

DRUGS (6)
  1. LYRICA [Suspect]
     Active Substance: PREGABALIN
     Indication: FIBROMYALGIA
     Dosage: 200 MG, 3X/DAY
  2. CELEBREX [Suspect]
     Active Substance: CELECOXIB
     Indication: FIBROMYALGIA
     Dosage: 200 MG, 1X/DAY
  3. LYRICA [Suspect]
     Active Substance: PREGABALIN
     Indication: NEUROPATHY PERIPHERAL
  4. CELEBREX [Suspect]
     Active Substance: CELECOXIB
     Indication: NEUROPATHY PERIPHERAL
  5. LYRICA [Suspect]
     Active Substance: PREGABALIN
     Indication: ARTHRITIS
  6. CELEBREX [Suspect]
     Active Substance: CELECOXIB
     Indication: ARTHRITIS

REACTIONS (2)
  - Urethral obstruction [Unknown]
  - Bladder disorder [Unknown]
